FAERS Safety Report 4932828-3 (Version None)
Quarter: 2006Q1

REPORT INFORMATION
  Report Type: 
  Country: None (occurrence: None)
  Receive Date: 20060302
  Receipt Date: 20060302
  Transmission Date: 20060701
  Serious: Yes (Hospitalization)
  Sender: FDA-Public Use
  Company Number: None

PATIENT
  Sex: Female
  Weight: 75 kg

DRUGS (7)
  1. AMLODIPINE [Suspect]
     Indication: HYPERTENSION
     Dosage: 10MG PO BID
     Route: 048
     Dates: start: 20010909, end: 20051201
  2. AMLODIPINE [Suspect]
     Indication: RENAL FAILURE CHRONIC
     Dosage: 10MG PO BID
     Route: 048
     Dates: start: 20010909, end: 20051201
  3. AMLODIPINE [Suspect]
     Indication: SYSTEMIC LUPUS ERYTHEMATOSUS
     Dosage: 10MG PO BID
     Route: 048
     Dates: start: 20010909, end: 20051201
  4. PREVACID [Concomitant]
  5. PREDNISONE [Concomitant]
  6. LABETALOL HCL [Concomitant]
  7. LOSARTAN POTASSIUM [Concomitant]

REACTIONS (2)
  - PANCREATITIS [None]
  - PSEUDOCYST [None]
